FAERS Safety Report 4443883-1 (Version None)
Quarter: 2004Q3

REPORT INFORMATION
  Report Type: 
  Country: None (occurrence: None)
  Receive Date: 20040802
  Receipt Date: 20040625
  Transmission Date: 20050211
  Serious: No
  Sender: FDA-Public Use
  Company Number: 2004-117854-NL

PATIENT
  Age: 35 Year
  Sex: Female
  Weight: 67.3 kg

DRUGS (4)
  1. NUVARING [Suspect]
     Indication: MENSTRUAL DISORDER
     Dosage: DF DAILY VAGINAL
     Route: 067
     Dates: start: 20040622, end: 20040625
  2. SYNTHROID [Concomitant]
  3. LORAZEPAM [Concomitant]
  4. ACIPHEX [Concomitant]

REACTIONS (5)
  - GROIN PAIN [None]
  - HEADACHE [None]
  - NAUSEA [None]
  - PAIN IN EXTREMITY [None]
  - TREMOR [None]
